FAERS Safety Report 22102298 (Version 1)
Quarter: 2023Q1

REPORT INFORMATION
  Report Type: Spontaneous
  Country: US (occurrence: None)
  Receive Date: 20230315
  Receipt Date: 20230315
  Transmission Date: 20230418
  Serious: Yes (Other)
  Sender: FDA-Public Use
  Company Number: None

PATIENT
  Age: 68 Year
  Sex: Female
  Weight: 56.25 kg

DRUGS (3)
  1. PAXLOVID [Suspect]
     Active Substance: NIRMATRELVIR\RITONAVIR
     Indication: COVID-19
     Dates: start: 20230222, end: 20230227
  2. MODERNA COVID-19 VACCINE [Suspect]
     Active Substance: ELASOMERAN
  3. VITAMINS [Concomitant]
     Active Substance: VITAMINS

REACTIONS (2)
  - SARS-CoV-2 test positive [None]
  - COVID-19 [None]

NARRATIVE: CASE EVENT DATE: 20230310
